FAERS Safety Report 24776347 (Version 1)
Quarter: 2024Q4

REPORT INFORMATION
  Report Type: Spontaneous
  Country: DE (occurrence: DE)
  Receive Date: 20241226
  Receipt Date: 20241226
  Transmission Date: 20250114
  Serious: Yes (Other)
  Sender: TEVA
  Company Number: DE-TEVA-VS-3277917

PATIENT
  Age: 55 Year
  Sex: Male

DRUGS (3)
  1. RAMIPRIL [Suspect]
     Active Substance: RAMIPRIL
     Indication: Hypertension
     Dosage: ABZ 5 MG TABLETTEN, PACK SIZE 100 PIECES, PCN 01755640
     Route: 065
     Dates: start: 2024
  2. RAMIPRIL [Suspect]
     Active Substance: RAMIPRIL
     Indication: Hypertension
     Dosage: ABZ 5 MG TABLETTEN, PACK SIZE 100 PIECES, PCN 01755640, FOR THREE YEAR
     Route: 065
  3. RAMIPRIL [Suspect]
     Active Substance: RAMIPRIL
     Indication: Hypertension
     Dosage: ABZ 5 MG TABLETTEN, PACK SIZE 100 PIECES, PCN 01755640
     Route: 065
     Dates: start: 20241021

REACTIONS (6)
  - Hypertension [Unknown]
  - Headache [Unknown]
  - Tinnitus [Unknown]
  - Drug ineffective [Unknown]
  - Malaise [Unknown]
  - Product quality issue [Unknown]

NARRATIVE: CASE EVENT DATE: 20240101
